FAERS Safety Report 5766357-4 (Version None)
Quarter: 2008Q2

REPORT INFORMATION
  Report Type: 
  Country: None (occurrence: None)
  Receive Date: 20080611
  Receipt Date: 20080604
  Transmission Date: 20081010
  Serious: Yes (Hospitalization, Other)
  Sender: FDA-Public Use
  Company Number: US-AMGEN-QUU279488

PATIENT
  Sex: Female
  Weight: 86.3 kg

DRUGS (15)
  1. ENBREL [Suspect]
     Indication: PSORIASIS
     Route: 058
     Dates: start: 20061219
  2. VASOTEC [Concomitant]
  3. GLIPIZIDE [Concomitant]
  4. ZOCOR [Concomitant]
  5. NORVASC [Concomitant]
  6. ASPIRIN [Concomitant]
  7. HYDROCHLOROTHIAZIDE [Concomitant]
  8. MAGNESIUM OXIDE [Concomitant]
  9. LORTAB [Concomitant]
  10. LANTUS [Concomitant]
     Route: 058
  11. ZOLOFT [Concomitant]
  12. VITAMIN CAP [Concomitant]
  13. UNSPECIFIED TOPICAL PRODUCT [Concomitant]
  14. NEXIUM [Concomitant]
  15. TRICOR [Concomitant]

REACTIONS (13)
  - ANXIETY [None]
  - BACK PAIN [None]
  - DEAFNESS NEUROSENSORY [None]
  - DIZZINESS [None]
  - DYSPEPSIA [None]
  - DYSPNOEA [None]
  - FATIGUE [None]
  - GOITRE [None]
  - HEADACHE [None]
  - HOT FLUSH [None]
  - THYROIDITIS [None]
  - VISUAL DISTURBANCE [None]
  - WHEEZING [None]
